FAERS Safety Report 4286301-9 (Version None)
Quarter: 2004Q1

REPORT INFORMATION
  Report Type: 
  Country: None (occurrence: None)
  Receive Date: 20040129
  Receipt Date: 20030305
  Transmission Date: 20041129
  Serious: No
  Sender: FDA-Public Use
  Company Number: A001-002-005535

PATIENT
  Age: 88 Year
  Sex: Female
  Weight: 56.6996 kg

DRUGS (3)
  1. ARICEPT [Suspect]
     Indication: DEMENTIA ALZHEIMER'S TYPE
     Dosage: 5 MG, 1 IN 1 D; ORAL (SEE IMAGE)
     Route: 048
     Dates: start: 20021201, end: 20030201
  2. ARICEPT [Suspect]
     Indication: DEMENTIA ALZHEIMER'S TYPE
     Dosage: 5 MG, 1 IN 1 D; ORAL (SEE IMAGE)
     Route: 048
     Dates: start: 20030202
  3. ACTOS [Concomitant]

REACTIONS (1)
  - CONVULSION [None]
